FAERS Safety Report 5374419-9 (Version None)
Quarter: 2007Q2

REPORT INFORMATION
  Report Type: 
  Country: None (occurrence: None)
  Receive Date: 20070629
  Receipt Date: 20070607
  Transmission Date: 20071010
  Serious: Yes (Other)
  Sender: FDA-Public Use
  Company Number: JP-AVENTIS-200711478JP

PATIENT

DRUGS (1)
  1. RILUTEK [Suspect]
     Indication: AMYOTROPHIC LATERAL SCLEROSIS

REACTIONS (3)
  - ANGIOEDEMA [None]
  - LARYNGEAL OEDEMA [None]
  - RESPIRATORY FAILURE [None]
